FAERS Safety Report 5202327-2 (Version None)
Quarter: 2006Q4

REPORT INFORMATION
  Report Type: 
  Country: None (occurrence: None)
  Receive Date: 20061012
  Receipt Date: 20051130
  Transmission Date: 20070319
  Serious: Yes (Life-Threatening, Other)
  Sender: FDA-Public Use
  Company Number: US-JNJFOC-20051200304

PATIENT
  Age: 69 Year
  Sex: Female

DRUGS (13)
  1. NATRECOR [Suspect]
     Indication: CARDIAC FAILURE CONGESTIVE
     Dosage: 750 UG, 1 IN 4 HOUR, INTRAVENOUS
     Route: 042
     Dates: start: 20051130, end: 20051130
  2. AMIODARONE HCL [Concomitant]
  3. CARVEDIOL (CARVEDILOL) [Concomitant]
  4. CEFTRIAXONE [Concomitant]
  5. DIGOXIN [Concomitant]
  6. FUROSEMIDE [Concomitant]
  7. HUMULIN (NOVOLIN 20/80) [Concomitant]
  8. LANSOPRAZOLE [Concomitant]
  9. LEVOALBUTEROL (ANTI-ASTHMATICS) [Concomitant]
  10. SEPTRA [Concomitant]
  11. SPIRONOLACTONE [Concomitant]
  12. WARFARIN SODIUM [Concomitant]
  13. ACETAMINOPHEN [Concomitant]

REACTIONS (1)
  - OVERDOSE [None]
